FAERS Safety Report 7686573-4 (Version None)
Quarter: 2011Q3

REPORT INFORMATION
  Report Type: 
  Country: None (occurrence: None)
  Receive Date: 20110816
  Receipt Date: 20110812
  Transmission Date: 20111222
  Serious: Yes (Other)
  Sender: FDA-Public Use
  Company Number: US-MERCK-1108USA00424

PATIENT
  Age: 60 Year
  Sex: Female

DRUGS (1)
  1. FOSAMAX [Suspect]
     Route: 048

REACTIONS (7)
  - SPINAL FRACTURE [None]
  - BIPOLAR DISORDER [None]
  - BONE PAIN [None]
  - SPINAL COMPRESSION FRACTURE [None]
  - COMPRESSION FRACTURE [None]
  - JOINT DISLOCATION [None]
  - INTERVERTEBRAL DISC DEGENERATION [None]
